FAERS Safety Report 7399801-X (Version None)
Quarter: 2011Q1

REPORT INFORMATION
  Report Type: 
  Country: None (occurrence: None)
  Receive Date: 20110329
  Receipt Date: 20110315
  Transmission Date: 20110831
  Serious: Yes (Life-Threatening, Other)
  Sender: FDA-Public Use
  Company Number: MC201100110

PATIENT
  Age: 87 Year
  Sex: Female

DRUGS (3)
  1. HYDRALAZINE HCL [Suspect]
     Dosage: 20 MG, INTRAVENOUS
     Route: 042
  2. METOPROLOL TARTRATE [Suspect]
     Dosage: 25 MG, PRN, ORAL
     Route: 048
  3. CLEVIPREX [Suspect]
     Dosage: MG,PRN, INTRAVENOUS
     Route: 042

REACTIONS (8)
  - CARDIOMEGALY [None]
  - ELECTROCARDIOGRAM QT PROLONGED [None]
  - LEFT VENTRICULAR HYPERTROPHY [None]
  - BRADYCARDIA [None]
  - PULMONARY CONGESTION [None]
  - MYOCARDIAL INFARCTION [None]
  - TACHYCARDIA [None]
  - PLEURAL EFFUSION [None]
